FAERS Safety Report 21762945 (Version 1)
Quarter: 2022Q4

REPORT INFORMATION
  Report Type: Spontaneous
  Country: AT (occurrence: None)
  Receive Date: 20221221
  Receipt Date: 20221221
  Transmission Date: 20230113
  Serious: Yes (Other)
  Sender: FDA-Public Use
  Company Number: 2022A408324

PATIENT
  Sex: Female

DRUGS (1)
  1. TAGRISSO [Suspect]
     Active Substance: OSIMERTINIB
     Route: 048

REACTIONS (4)
  - Malignant neoplasm progression [Unknown]
  - Menstrual disorder [Unknown]
  - Intermenstrual bleeding [Unknown]
  - Fluid retention [Unknown]
